FAERS Safety Report 7231295-7 (Version None)
Quarter: 2011Q1

REPORT INFORMATION
  Report Type: 
  Country: None (occurrence: None)
  Receive Date: 20110118
  Receipt Date: 20110114
  Transmission Date: 20110831
  Serious: No
  Sender: FDA-Public Use
  Company Number: US-PFIZER INC-2011010284

PATIENT
  Sex: Female
  Weight: 59 kg

DRUGS (1)
  1. GENOTROPIN [Suspect]
     Indication: HYPOTHALAMO-PITUITARY DISORDER
     Dosage: UNK
     Route: 058

REACTIONS (1)
  - ASTHENIA [None]
